FAERS Safety Report 20048974 (Version 1)
Quarter: 2021Q4

REPORT INFORMATION
  Report Type: Spontaneous
  Country: CA (occurrence: CA)
  Receive Date: 20211109
  Receipt Date: 20211109
  Transmission Date: 20220303
  Serious: Yes (Other)
  Sender: FDA-Public Use
  Company Number: CA-TEVA-2021-CA-1974299

PATIENT
  Age: 15 Year
  Sex: Male

DRUGS (1)
  1. BUPROPION [Suspect]
     Active Substance: BUPROPION
     Route: 048

REACTIONS (4)
  - Anaphylactic reaction [Unknown]
  - Dizziness [Unknown]
  - Lip swelling [Unknown]
  - Swelling of eyelid [Unknown]
